FAERS Safety Report 23687425 (Version 5)
Quarter: 2024Q4

REPORT INFORMATION
  Report Type: Report from Study
  Country: US (occurrence: US)
  Receive Date: 20240329
  Receipt Date: 20241021
  Transmission Date: 20250115
  Serious: Yes (Hospitalization)
  Sender: OTSUKA
  Company Number: US-OTSUKA-2024_008118

PATIENT
  Age: 51 Year
  Sex: Female

DRUGS (27)
  1. TOLVAPTAN [Suspect]
     Active Substance: TOLVAPTAN
     Indication: Congenital cystic kidney disease
     Dosage: UNK
     Route: 065
     Dates: start: 20200312
  2. TOLVAPTAN [Suspect]
     Active Substance: TOLVAPTAN
     Dosage: UNK
     Route: 065
  3. ZYLOPRIM [Concomitant]
     Active Substance: ALLOPURINOL
     Indication: Product used for unknown indication
     Dosage: 1 DF, QD (EVERY MORNING)
     Route: 048
  4. ELIQUIS [Concomitant]
     Active Substance: APIXABAN
     Indication: Product used for unknown indication
     Dosage: 2 DF, BID (FOR 4 DAYS)
     Route: 048
  5. ELIQUIS [Concomitant]
     Active Substance: APIXABAN
     Dosage: 1 DF, BID
     Route: 048
  6. WELLBUTRIN [Concomitant]
     Active Substance: BUPROPION HYDROCHLORIDE
     Indication: Product used for unknown indication
     Dosage: 1 DF, QD (EVERY MORNING)
     Route: 048
  7. VITAMIN D3 [Concomitant]
     Active Substance: CHOLECALCIFEROL
     Indication: Product used for unknown indication
     Dosage: 1 DF, QD (EVERY MORNING 25 MCG)
     Route: 048
  8. KLONOPIN [Concomitant]
     Active Substance: CLONAZEPAM
     Indication: Anxiety
     Dosage: 0.5 DF, TID (0.5 MG IF TAKEN DURING THE DAY AND 1 MG AT NIGHT IF NEEDED)
     Route: 048
  9. KLONOPIN [Concomitant]
     Active Substance: CLONAZEPAM
     Indication: Sleep disorder
  10. VOLTAREN [Concomitant]
     Active Substance: DICLOFENAC SODIUM
     Indication: Product used for unknown indication
     Dosage: 4 G, QID (APPLY TO AFFECTED AREA)
     Route: 061
  11. BENTYL [Concomitant]
     Active Substance: DICYCLOMINE HYDROCHLORIDE
     Indication: Product used for unknown indication
     Dosage: 1 DF, AS NECESSARY (EVERY 6 HOURS)
     Route: 048
  12. VITAMIN D2 [Concomitant]
     Active Substance: ERGOCALCIFEROL
     Indication: Product used for unknown indication
     Dosage: 1 DF, QM (EVERY 30 DAYS)
     Route: 048
  13. PEPCID [Concomitant]
     Active Substance: FAMOTIDINE
     Indication: Product used for unknown indication
     Dosage: 1 DF, QD (NIGHTLY)
     Route: 048
  14. PLAQUENIL [Concomitant]
     Active Substance: HYDROXYCHLOROQUINE SULFATE
     Indication: Product used for unknown indication
     Dosage: 1 DF, QD (EVERY MORNING)
     Route: 048
  15. LAMICTAL [Concomitant]
     Active Substance: LAMOTRIGINE
     Indication: Product used for unknown indication
     Dosage: 100 MG, QD (IN MORNING)
     Route: 048
  16. LAMICTAL [Concomitant]
     Active Substance: LAMOTRIGINE
     Dosage: 150 MG, QD (AT NIGHT 100MG TABLET WITH TWO 25MG TABLETS)
     Route: 048
  17. LIDODERM [Concomitant]
     Active Substance: LIDOCAINE
     Indication: Product used for unknown indication
     Dosage: PLACE 1 PATCH ON THE SKIN EVERY 12 (TWELVE) HOURS. REMOVE + DISCARD PATCH WITHIN 12 HOURS
     Route: 061
  18. LINZESS [Concomitant]
     Active Substance: LINACLOTIDE
     Indication: Product used for unknown indication
     Dosage: 1 DF, AS NECESSARY
     Route: 048
  19. SINGULAIR [Concomitant]
     Active Substance: MONTELUKAST SODIUM
     Indication: Product used for unknown indication
     Dosage: 1 DF, QD (EVERY NIGHT)
     Route: 048
  20. ZOFRAN [Concomitant]
     Active Substance: ONDANSETRON HYDROCHLORIDE
     Indication: Nausea
     Dosage: 1 DF, QD (AS NEEDED)
     Route: 048
  21. ZOFRAN [Concomitant]
     Active Substance: ONDANSETRON HYDROCHLORIDE
     Indication: Vomiting
  22. PROTONIX [Concomitant]
     Active Substance: PANTOPRAZOLE SODIUM
     Indication: Product used for unknown indication
     Dosage: 1 DF, AS NECESSARY
     Route: 048
  23. VITAMIN B6 [Concomitant]
     Active Substance: PYRIDOXINE HYDROCHLORIDE
     Indication: Product used for unknown indication
     Dosage: 1 DF, AS NECESSARY
     Route: 048
  24. OZEMPIC [Concomitant]
     Active Substance: SEMAGLUTIDE
     Indication: Product used for unknown indication
     Dosage: 1 MG (INJECT UNDER THE SKIN EVERY 7 DAYS)
     Route: 058
  25. ZANAFLEX [Concomitant]
     Active Substance: TIZANIDINE HYDROCHLORIDE
     Indication: Muscle spasms
     Dosage: 1 DF, AS NECESSARY (EVERY 6 HOURS)
     Route: 048
  26. DESYREL [Concomitant]
     Active Substance: TRAZODONE HYDROCHLORIDE
     Indication: Product used for unknown indication
     Dosage: 2 DF, QD (NIGHTLY)
     Route: 048
  27. KENALOG [Concomitant]
     Active Substance: TRIAMCINOLONE ACETONIDE
     Indication: Product used for unknown indication
     Dosage: 1 DF, AS NECESSARY
     Route: 061

REACTIONS (3)
  - Knee arthroplasty [Not Recovered/Not Resolved]
  - Dysarthria [Unknown]
  - Amnesia [Unknown]

NARRATIVE: CASE EVENT DATE: 20240315
